FAERS Safety Report 8758865 (Version 1)
Quarter: 2012Q4

REPORT INFORMATION
  Report Type: 
  Country: CA (occurrence: CA)
  Receive Date: 20120829
  Receipt Date: 20120829
  Transmission Date: 20130627
  Serious: Yes (Other)
  Sender: FDA-Public Use
  Company Number: CA-MYLANLABS-2012S1016871

PATIENT
  Age: 57 Year
  Sex: Female
  Weight: 94 kg

DRUGS (14)
  1. MORPHINE [Suspect]
     Indication: SPINAL ANAESTHESIA
     Dosage: injected via a Quincke 22G needle at the interspace between 3rd + 4th lumbar vertebrae
     Route: 037
  2. BUPIVACAINE [Concomitant]
     Indication: SPINAL ANAESTHESIA
     Dosage: isobaric 0.5% bupivacaine 11mg
  3. FENTANYL [Concomitant]
     Indication: SPINAL ANAESTHESIA
  4. PROPOFOL [Concomitant]
     Indication: SEDATIVE THERAPY
     Dosage: average rate of 100 microgram/kg/min
     Route: 041
  5. SODIUM CHLORIDE [Concomitant]
     Dosage: room temperature 0.9% saline 1000mL intraoperatively
     Route: 041
  6. DICLOFENAC [Concomitant]
     Route: 048
  7. ROSUVASTATIN [Concomitant]
     Route: 065
  8. FLUTICASONE PROPIONATE W/SALMETEROL [Concomitant]
     Route: 055
  9. CEFAZOLIN [Concomitant]
     Dosage: 2g
     Route: 042
  10. PARACETAMOL [Concomitant]
     Dosage: 1625mg
     Route: 048
  11. RANITIDINE [Concomitant]
     Dosage: 150mg
     Route: 048
  12. SALBUTAMOL [Concomitant]
     Dosage: 2.5mg; nebulised
     Route: 055
  13. DEXAMETHASONE [Concomitant]
     Dosage: 4mg
     Route: 042
  14. MIDAZOLAM [Concomitant]
     Dosage: 1.5mg
     Route: 042

REACTIONS (3)
  - Hypothermia [Recovered/Resolved]
  - Nausea [Recovered/Resolved]
  - Hyperhidrosis [Recovered/Resolved]
